FAERS Safety Report 9122001 (Version 1)
Quarter: 2013Q1

REPORT INFORMATION
  Report Type: Spontaneous
  Country: US (occurrence: US)
  Receive Date: 20130114
  Receipt Date: 20130114
  Transmission Date: 20140127
  Serious: No
  Sender: FDA-Public Use
  Company Number: US-ASTRAZENECA-2013SE01119

PATIENT
  Sex: Female

DRUGS (2)
  1. FASLODEX [Suspect]
     Indication: BREAST CANCER
     Route: 030
     Dates: start: 201111
  2. METOPROLOL [Suspect]
     Route: 048

REACTIONS (7)
  - Injection site haemorrhage [Unknown]
  - Pain [Unknown]
  - Injection site pain [Unknown]
  - Injection site swelling [Unknown]
  - Gait disturbance [Unknown]
  - Insomnia [Unknown]
  - Dizziness [Unknown]
